FAERS Safety Report 9256355 (Version 1)
Quarter: 2013Q2

REPORT INFORMATION
  Report Type: Spontaneous
  Country: US (occurrence: US)
  Receive Date: 20130425
  Receipt Date: 20130425
  Transmission Date: 20140414
  Serious: No
  Sender: FDA-Public Use
  Company Number: US-ASTRAZENECA-2013SE23780

PATIENT
  Age: 74 Year
  Sex: Female

DRUGS (11)
  1. CRESTOR [Suspect]
     Indication: BLOOD CHOLESTEROL INCREASED
     Route: 048
     Dates: start: 201303, end: 201303
  2. LEVOTHYROXINE [Concomitant]
     Indication: THYROID DISORDER
     Route: 048
     Dates: start: 201210
  3. CLONIDINE HCL [Concomitant]
     Indication: HYPERTENSION
     Route: 048
  4. DILTIAZEM [Concomitant]
     Indication: HYPERTENSION
     Route: 048
  5. WARFARIN [Concomitant]
     Route: 048
  6. BISOPROLOL FUMARATE [Concomitant]
     Indication: CARDIAC DISORDER
     Route: 048
  7. GLIMEPRIDE [Concomitant]
     Indication: DIABETES MELLITUS
     Route: 048
  8. FUROSEMIDE [Concomitant]
     Indication: FLUID IMBALANCE
     Route: 048
  9. PIKOSYN [Concomitant]
     Indication: CARDIAC DISORDER
     Route: 048
  10. BENECARD [Concomitant]
     Indication: CARDIAC DISORDER
     Route: 048
  11. METFORMIN [Concomitant]
     Indication: DIABETES MELLITUS
     Route: 048
     Dates: start: 201303

REACTIONS (5)
  - Chest pain [Unknown]
  - Arthralgia [Recovered/Resolved]
  - Diabetes mellitus [Unknown]
  - Off label use [Unknown]
  - Drug dose omission [Unknown]
